FAERS Safety Report 17276528 (Version 1)
Quarter: 2020Q1

REPORT INFORMATION
  Report Type: Spontaneous
  Country: JP (occurrence: JP)
  Receive Date: 20200116
  Receipt Date: 20200116
  Transmission Date: 20200409
  Serious: Yes (Other)
  Sender: FDA-Public Use
  Company Number: JP-JNJFOC-20180522014

PATIENT
  Age: 59 Year
  Sex: Male
  Weight: 76 kg

DRUGS (7)
  1. JANUVIA [Concomitant]
     Active Substance: SITAGLIPTIN PHOSPHATE
     Indication: TYPE 2 DIABETES MELLITUS
     Dosage: START: BEFORE ADMINISTRATION OF CANAGLIFLOZIN
     Route: 048
     Dates: end: 20170302
  2. METGLUCO [Concomitant]
     Active Substance: METFORMIN HYDROCHLORIDE
     Indication: TYPE 2 DIABETES MELLITUS
     Dosage: START: BEFORE ADMINISTRATION OF CANAGLIFLOZIN
     Route: 048
  3. TENELIA [Concomitant]
     Active Substance: TENELIGLIPTIN
     Indication: TYPE 2 DIABETES MELLITUS
     Dosage: START: BEFORE ADMINISTRATION OF CANAGLIFLOZIN
     Route: 048
  4. NU-LOTAN [Concomitant]
     Active Substance: LOSARTAN POTASSIUM
     Dosage: START: BEFORE ADMINISTRATION OF CANAGLIFLOZIN
     Route: 048
  5. FEBURIC [Concomitant]
     Active Substance: FEBUXOSTAT
     Dosage: START: BEFORE ADMINISTRATION OF CANAGLIFLOZIN
     Route: 048
  6. CANAGLIFLOZIN [Suspect]
     Active Substance: CANAGLIFLOZIN
     Indication: TYPE 2 DIABETES MELLITUS
     Route: 048
     Dates: start: 20160513
  7. AMARYL [Concomitant]
     Active Substance: GLIMEPIRIDE
     Indication: TYPE 2 DIABETES MELLITUS
     Dosage: START: BEFORE ADMINISTRATION OF CANAGLIFLOZIN
     Route: 048

REACTIONS (2)
  - Large intestine polyp [Recovering/Resolving]
  - Haemangioma of liver [Recovering/Resolving]

NARRATIVE: CASE EVENT DATE: 201705
